FAERS Safety Report 8964256 (Version 1)
Quarter: 2012Q4

REPORT INFORMATION
  Report Type: Report from Study
  Country: RU (occurrence: RU)
  Receive Date: 20121213
  Receipt Date: 20121213
  Transmission Date: 20130627
  Serious: Yes (Other)
  Sender: FDA-Public Use
  Company Number: RU-MERCK-1211RUS007317

PATIENT
  Age: 41 Year
  Sex: Male
  Weight: 110.1 kg

DRUGS (8)
  1. BLINDED BOCEPREVIR [Suspect]
     Indication: CHRONIC HEPATITIS C
     Dosage: UNK UNK, tid
     Route: 048
     Dates: start: 20120625
  2. BLINDED PEGINTERFERON ALFA-2B [Suspect]
     Indication: CHRONIC HEPATITIS C
     Dosage: UNK UNK, tid
     Route: 048
     Dates: start: 20120625
  3. BLINDED PLACEBO [Suspect]
     Indication: CHRONIC HEPATITIS C
     Dosage: UNK UNK, tid
     Route: 048
     Dates: start: 20120625
  4. BLINDED POST TRIAL THERAPY [Suspect]
     Indication: CHRONIC HEPATITIS C
     Dosage: UNK UNK, tid
     Route: 048
     Dates: start: 20120625
  5. BLINDED PRE TRIAL THERAPY [Suspect]
     Indication: CHRONIC HEPATITIS C
     Dosage: UNK UNK, tid
     Route: 048
     Dates: start: 20120625
  6. BLINDED RIBAVIRIN [Suspect]
     Indication: CHRONIC HEPATITIS C
     Dosage: UNK UNK, tid
     Route: 048
     Dates: start: 20120625
  7. PEGINTERFERON ALFA-2B [Suspect]
     Indication: CHRONIC HEPATITIS C
     Dosage: Formulation: Redipen,150 mcg,0.5 ml, qw,dose at onset: 120 mcg,dose in series: 1of 5
     Route: 058
     Dates: start: 20120319
  8. RIBAVIRIN [Suspect]
     Indication: CHRONIC HEPATITIS C
     Dosage: 600 mg in morning, 800mg in evening, dose in series: 1 of 2, dose at onset: 1400 mg/daily
     Route: 048
     Dates: start: 20120319

REACTIONS (1)
  - Neutropenia [Recovered/Resolved]
